FAERS Safety Report 18437414 (Version 1)
Quarter: 2020Q4

REPORT INFORMATION
  Report Type: Report from Study
  Country: CA (occurrence: CA)
  Receive Date: 20201028
  Receipt Date: 20201028
  Transmission Date: 20210114
  Serious: Yes (Other)
  Sender: FDA-Public Use
  Company Number: CA-TAKEDA-2019TUS014047

PATIENT
  Age: 25 Year
  Sex: Male

DRUGS (7)
  1. FOLIC ACID. [Concomitant]
     Active Substance: FOLIC ACID
     Dosage: 5 MILLIGRAM
  2. VEDOLIZUMAB [Suspect]
     Active Substance: VEDOLIZUMAB
     Indication: COLITIS ULCERATIVE
     Dosage: 300 MILLIGRAM
     Route: 042
     Dates: start: 20170706
  3. VEDOLIZUMAB [Suspect]
     Active Substance: VEDOLIZUMAB
     Dosage: 300 MILLIGRAM
     Route: 042
  4. METHOTREXATE. [Concomitant]
     Active Substance: METHOTREXATE
     Dosage: 15 MILLIGRAM, 1/WEEK
  5. SALOFALK                           /00000301/ [Concomitant]
     Active Substance: AMINOSALICYLIC ACID
     Dosage: 2000 MILLIGRAM
  6. IRON [Concomitant]
     Active Substance: IRON
     Dosage: 300 MILLIGRAM, QD
  7. VEDOLIZUMAB [Suspect]
     Active Substance: VEDOLIZUMAB
     Dosage: 300 MILLIGRAM
     Route: 042

REACTIONS (2)
  - Colitis ulcerative [Unknown]
  - Drug level decreased [Unknown]

NARRATIVE: CASE EVENT DATE: 20190415
